FAERS Safety Report 9196686 (Version 2)
Quarter: 2013Q2

REPORT INFORMATION
  Report Type: Spontaneous
  Country: NL (occurrence: NL)
  Receive Date: 20130328
  Receipt Date: 20130422
  Transmission Date: 20140414
  Serious: Yes (Hospitalization)
  Sender: FDA-Public Use
  Company Number: NL-MYLANLABS-2013S1006020

PATIENT
  Age: 28 Year
  Sex: Female
  Weight: 61 kg

DRUGS (2)
  1. TERBINAFINE [Suspect]
     Indication: ONYCHOMYCOSIS
     Dosage: 1 KEER PER DAG 1 STUK(S)
     Route: 048
     Dates: start: 20100802
  2. YASMIN [Interacting]
     Indication: CONTRACEPTION
     Dosage: CYCLICAL
     Route: 048
     Dates: start: 20090901, end: 20100919

REACTIONS (3)
  - Drug interaction [Recovered/Resolved]
  - Thrombosis [Recovered/Resolved]
  - Pulmonary embolism [Recovered/Resolved]
